FAERS Safety Report 9843700 (Version 1)
Quarter: 2013Q4

REPORT INFORMATION
  Report Type: Spontaneous
  Country: US (occurrence: None)
  Receive Date: 20131223
  Receipt Date: 20131223
  Transmission Date: 20140711
  Serious: Yes (Other)
  Sender: FDA-Public Use
  Company Number: 218695LEO

PATIENT
  Age: 56 Year
  Sex: Male

DRUGS (2)
  1. PICATO [Suspect]
     Indication: PRODUCT USED FOR UNKNOWN INDICATION
  2. DICLOFENAC [Suspect]
     Indication: PRODUCT USED FOR UNKNOWN INDICATION

REACTIONS (6)
  - Skin reaction [None]
  - Adverse event [None]
  - Treatment noncompliance [None]
  - Drug ineffective [None]
  - Drug administration error [None]
  - Drug intolerance [None]
